FAERS Safety Report 10053386 (Version 3)
Quarter: 2014Q2

REPORT INFORMATION
  Report Type: Spontaneous
  Country: US (occurrence: US)
  Receive Date: 20140402
  Receipt Date: 20140430
  Transmission Date: 20141212
  Serious: No
  Sender: FDA-Public Use
  Company Number: US-PFIZER INC-2014039188

PATIENT
  Age: 69 Year
  Sex: Female
  Weight: 48 kg

DRUGS (5)
  1. SUTENT [Suspect]
     Indication: THYROID CANCER METASTATIC
     Dosage: 37.5 MG, DAILY
     Route: 048
     Dates: start: 20140203, end: 201403
  2. CELEBREX [Concomitant]
     Indication: ARTHRITIS
     Dosage: 200 MG, 1X/DAY
     Route: 048
  3. CELEBREX [Concomitant]
     Indication: PAIN
  4. LEVOXYL [Concomitant]
     Indication: THYROID DISORDER
     Dosage: 137 UG, 1X/DAY
     Route: 048
  5. LEVOXYL [Concomitant]
     Indication: HYPOTHYROIDISM

REACTIONS (4)
  - Off label use [Unknown]
  - Rash [Unknown]
  - Palmar-plantar erythrodysaesthesia syndrome [Recovering/Resolving]
  - Skin irritation [Recovering/Resolving]
